FAERS Safety Report 13401464 (Version 3)
Quarter: 2017Q2

REPORT INFORMATION
  Report Type: Report from Study
  Country: IE (occurrence: IE)
  Receive Date: 20170404
  Receipt Date: 20170516
  Transmission Date: 20170830
  Serious: Yes (Hospitalization)
  Sender: FDA-Public Use
  Company Number: IE-JNJFOC-20170400241

PATIENT
  Age: 69 Year
  Sex: Female

DRUGS (12)
  1. LERCANIDIPINE [Concomitant]
     Active Substance: LERCANIDIPINE
     Route: 065
  2. FOLIC ACID. [Concomitant]
     Active Substance: FOLIC ACID
     Route: 065
  3. METHOTREXATE. [Concomitant]
     Active Substance: METHOTREXATE
     Route: 065
  4. OMESAR [Concomitant]
     Active Substance: OLMESARTAN MEDOXOMIL
     Route: 050
  5. LECALPIN [Concomitant]
     Route: 065
  6. SALAZOPYRIN [Concomitant]
     Active Substance: SULFASALAZINE
     Route: 065
  7. CALCIUM [Concomitant]
     Active Substance: CALCIUM
     Route: 065
  8. LIPITOR [Concomitant]
     Active Substance: ATORVASTATIN CALCIUM
     Route: 065
  9. NU SEALS [Concomitant]
     Route: 065
  10. SIMPONI [Suspect]
     Active Substance: GOLIMUMAB
     Indication: RHEUMATOID ARTHRITIS
     Route: 058
     Dates: start: 20151203
  11. FABRAZYME [Suspect]
     Active Substance: AGALSIDASE BETA
     Indication: FABRY^S DISEASE
     Route: 042
     Dates: start: 20170315
  12. FABRAZYME [Suspect]
     Active Substance: AGALSIDASE BETA
     Indication: FABRY^S DISEASE
     Route: 042
     Dates: start: 20111220

REACTIONS (4)
  - Infection [Not Recovered/Not Resolved]
  - Sepsis [Recovered/Resolved]
  - Asthenia [Unknown]
  - Dyspnoea [Not Recovered/Not Resolved]

NARRATIVE: CASE EVENT DATE: 20170322
